FAERS Safety Report 8489330-4 (Version None)
Quarter: 2012Q3

REPORT INFORMATION
  Report Type: 
  Country: None (occurrence: None)
  Receive Date: 20120705
  Receipt Date: 20120703
  Transmission Date: 20120928
  Serious: Yes (Hospitalization, Other)
  Sender: FDA-Public Use
  Company Number: JP-ROCHE-1012590

PATIENT
  Sex: Female
  Weight: 46.8 kg

DRUGS (14)
  1. WARFARIN SODIUM [Concomitant]
     Dates: start: 20100519
  2. ALENDRONATE SODIUM [Concomitant]
     Dates: start: 20080604
  3. FOLIC ACID [Concomitant]
     Dates: start: 20081112
  4. PREDNISOLONE [Concomitant]
     Dates: start: 20110721
  5. EZETIMIBE [Concomitant]
     Dates: start: 20110427
  6. ACTEMRA [Suspect]
     Dates: start: 20110608
  7. FOLIC ACID [Concomitant]
  8. BLINDED OCRELIZUMAB [Suspect]
     Indication: RHEUMATOID ARTHRITIS
     Dosage: LAST DOSE PRIOR TO SAE ON 27 JUL 2009.
     Route: 042
     Dates: start: 20090126
  9. LOXOPROFEN SODIUM [Concomitant]
     Dates: start: 20100608
  10. METHOTREXATE [Suspect]
     Indication: PRODUCT USED FOR UNKNOWN INDICATION
     Dates: start: 20080902
  11. ACTEMRA [Suspect]
     Indication: RHEUMATOID ARTHRITIS
     Dates: start: 20091216
  12. PREDNISOLONE [Concomitant]
     Dates: start: 20100323
  13. LANSOPRAZOLE [Concomitant]
     Dates: start: 20100302
  14. ALENDRONATE SODIUM [Concomitant]
     Dates: start: 20080604

REACTIONS (4)
  - INGUINAL HERNIA [None]
  - BENIGN OVARIAN TUMOUR [None]
  - OESOPHAGEAL VARICES HAEMORRHAGE [None]
  - ASCITES [None]
